FAERS Safety Report 5221865-X (Version None)
Quarter: 2007Q1

REPORT INFORMATION
  Report Type: 
  Country: None (occurrence: None)
  Receive Date: 20070129
  Receipt Date: 20070117
  Transmission Date: 20070707
  Serious: Yes (Death, Hospitalization)
  Sender: FDA-Public Use
  Company Number: DEWYE979621SEP06

PATIENT
  Sex: Female
  Weight: 60 kg

DRUGS (5)
  1. ENBREL [Suspect]
     Indication: PSORIASIS
     Route: 058
     Dates: start: 20060701, end: 20060701
  2. AVELOX [Suspect]
     Indication: PNEUMONIA
     Route: 042
     Dates: start: 20060819, end: 20060820
  3. TOPISOLON [Concomitant]
  4. FUCICORT [Concomitant]
  5. ASPIRIN [Concomitant]
     Indication: HYPERTENSION
     Route: 048
     Dates: start: 20040701

REACTIONS (3)
  - INFECTION [None]
  - MYOCARDIAL INFARCTION [None]
  - SYNCOPE [None]
